FAERS Safety Report 9132979 (Version 1)
Quarter: 2013Q1

REPORT INFORMATION
  Report Type: Spontaneous
  Country: US (occurrence: US)
  Receive Date: 20130301
  Receipt Date: 20130301
  Transmission Date: 20140127
  Serious: Yes (Hospitalization, Other)
  Sender: FDA-Public Use
  Company Number: US-ELI_LILLY_AND_COMPANY-US201302006889

PATIENT
  Sex: Male

DRUGS (2)
  1. ADCIRCA [Suspect]
  2. LETAIRIS [Concomitant]
     Indication: PULMONARY HYPERTENSION
     Dosage: 5 MG, QD

REACTIONS (6)
  - Renal failure acute [Unknown]
  - Urinary tract infection fungal [Unknown]
  - Urethral haemorrhage [Unknown]
  - Anaemia [Unknown]
  - Weight increased [Unknown]
  - Hypotension [Unknown]
